FAERS Safety Report 8194326-6 (Version None)
Quarter: 2012Q1

REPORT INFORMATION
  Report Type: 
  Country: None (occurrence: None)
  Receive Date: 20120308
  Receipt Date: 20120305
  Transmission Date: 20120608
  Serious: No
  Sender: FDA-Public Use
  Company Number: US-PFIZER INC-2012038837

PATIENT
  Sex: Male
  Weight: 120.6 kg

DRUGS (5)
  1. SPIRONOLACTONE [Concomitant]
     Dosage: 25 MG, DAILY
  2. COREG [Concomitant]
     Indication: CARDIOMYOPATHY
     Dosage: 25 MG, 2X/DAY
  3. COUMADIN [Concomitant]
     Indication: CARDIOMYOPATHY
     Dosage: 5 MG, DAILY
  4. TIKOSYN [Suspect]
     Indication: ATRIAL FIBRILLATION
     Dosage: 250 UG, 2X/DAY
     Dates: start: 20110601
  5. LISINOPRIL [Concomitant]
     Indication: CARDIOMYOPATHY
     Dosage: 10 MG, DAILY

REACTIONS (1)
  - NO ADVERSE EVENT [None]
